FAERS Safety Report 21031340 (Version 1)
Quarter: 2022Q3

REPORT INFORMATION
  Report Type: Spontaneous
  Country: US (occurrence: None)
  Receive Date: 20220701
  Receipt Date: 20220701
  Transmission Date: 20221027
  Serious: No
  Sender: FDA-Public Use
  Company Number: US-ROCHE-3032586

PATIENT
  Age: 71 Year
  Sex: Female
  Weight: 68.100 kg

DRUGS (3)
  1. ACTEMRA [Suspect]
     Active Substance: TOCILIZUMAB
     Indication: Giant cell arteritis
     Dosage: . LAST INJECTION TAKEN 21/JAN/2022.?INJECT 162MG SUBCUTANEOUSLY EVERY OTHER WEEK
     Route: 058
     Dates: start: 202108
  2. ACTEMRA [Suspect]
     Active Substance: TOCILIZUMAB
  3. OXYCODONE [Concomitant]
     Active Substance: OXYCODONE
     Dates: start: 20170501

REACTIONS (6)
  - Device malfunction [Unknown]
  - Device defective [Unknown]
  - Product physical issue [Unknown]
  - Device difficult to use [Unknown]
  - Product dose omission issue [Unknown]
  - No adverse event [Unknown]

NARRATIVE: CASE EVENT DATE: 20211101
